FAERS Safety Report 14499451 (Version 1)
Quarter: 2018Q1

REPORT INFORMATION
  Report Type: Spontaneous
  Country: US (occurrence: US)
  Receive Date: 20180207
  Receipt Date: 20180207
  Transmission Date: 20180509
  Serious: No
  Sender: FDA-Public Use
  Company Number: US-PERRIGO-17US000698

PATIENT
  Age: 69 Year
  Sex: Female
  Weight: 72.56 kg

DRUGS (1)
  1. CETIRIZINE HYDROCHLORIDE. [Suspect]
     Active Substance: CETIRIZINE HYDROCHLORIDE
     Indication: HYPERSENSITIVITY
     Dosage: 20 MG, SINGLE
     Route: 048
     Dates: start: 20170112, end: 20170112

REACTIONS (3)
  - Expired product administered [Recovered/Resolved]
  - Drug administered to patient of inappropriate age [Recovered/Resolved]
  - Incorrect dose administered [Recovered/Resolved]

NARRATIVE: CASE EVENT DATE: 20170112
